FAERS Safety Report 4268043-9 (Version None)
Quarter: 2004Q1

REPORT INFORMATION
  Report Type: 
  Country: None (occurrence: None)
  Receive Date: 20040109
  Receipt Date: 20040109
  Transmission Date: 20041129
  Serious: Yes (Other)
  Sender: FDA-Public Use
  Company Number: None

PATIENT
  Sex: Male
  Weight: 65.7716 kg

DRUGS (13)
  1. RISPERIDONE [Suspect]
     Indication: AGITATION
     Dosage: 1MG PRN ORAL
     Route: 048
     Dates: start: 20031121, end: 20031124
  2. RISPERIDONE [Suspect]
     Indication: DEMENTIA
     Dosage: 1MG PRN ORAL
     Route: 048
     Dates: start: 20031121, end: 20031124
  3. ACETIC ACID 0.25% SOLN [Concomitant]
  4. CHLOROPHYLL/PAPAIN/UREA [Concomitant]
  5. CLOTRIMAZOLE 1% CR CREAM [Concomitant]
  6. HEPARIN [Concomitant]
  7. HYDROCHLOROTHIAZIDE [Concomitant]
  8. HYDROCORTISONE 1% CR CREAM [Concomitant]
  9. LEVOTHYROXINE SODIUM [Concomitant]
  10. LINEZOLID [Concomitant]
  11. LISINOPRIL [Concomitant]
  12. LORAZEPAM [Concomitant]
  13. MORPHINE [Concomitant]

REACTIONS (2)
  - AGGRESSION [None]
  - HALLUCINATION [None]
